FAERS Safety Report 10631026 (Version 1)
Quarter: 2014Q4

REPORT INFORMATION
  Report Type: Spontaneous
  Country: US (occurrence: US)
  Receive Date: 20141205
  Receipt Date: 20141205
  Transmission Date: 20150529
  Serious: No
  Sender: FDA-Public Use
  Company Number: US-BRISTOL-MYERS SQUIBB COMPANY-21527304

PATIENT
  Age: 79 Year
  Sex: Female

DRUGS (4)
  1. ELIQUIS [Suspect]
     Active Substance: APIXABAN
     Indication: ATRIAL FIBRILLATION
     Route: 048
     Dates: start: 20141021
  2. CARVEDILOL. [Concomitant]
     Active Substance: CARVEDILOL
  3. ATORVASTATIN [Concomitant]
     Active Substance: ATORVASTATIN
  4. LOSARTAN [Concomitant]
     Active Substance: LOSARTAN

REACTIONS (2)
  - Musculoskeletal pain [Unknown]
  - Insomnia [Unknown]

NARRATIVE: CASE EVENT DATE: 20141021
